FAERS Safety Report 5759771-4 (Version None)
Quarter: 2008Q2

REPORT INFORMATION
  Report Type: 
  Country: None (occurrence: None)
  Receive Date: 20080605
  Receipt Date: 20080526
  Transmission Date: 20081010
  Serious: Yes (Hospitalization)
  Sender: FDA-Public Use
  Company Number: B0520382A

PATIENT
  Sex: Female

DRUGS (5)
  1. TOPOTECAN [Suspect]
     Dosage: 4MG WEEKLY
     Route: 042
     Dates: start: 20070605, end: 20070619
  2. ALBUMIN (HUMAN) [Concomitant]
     Dosage: 200ML PER DAY
     Route: 042
     Dates: start: 20070626, end: 20070626
  3. TRAMAL LONG [Concomitant]
     Indication: PAIN
     Dosage: 200MG PER DAY
     Dates: start: 20070626
  4. HALOPERIDOL [Concomitant]
     Indication: PAIN
     Dosage: 1.5MG PER DAY
     Dates: start: 20070626, end: 20070627
  5. NOVALDIN INJ [Concomitant]
     Indication: PAIN
     Dosage: 1G PER DAY
     Route: 042
     Dates: start: 20070630, end: 20070715

REACTIONS (3)
  - ASCITES [None]
  - DYSPNOEA [None]
  - PAIN [None]
